FAERS Safety Report 4441480-5 (Version None)
Quarter: 2004Q3

REPORT INFORMATION
  Report Type: 
  Country: None (occurrence: None)
  Receive Date: 20040728
  Receipt Date: 20040505
  Transmission Date: 20050211
  Serious: No
  Sender: FDA-Public Use
  Company Number: USA040566908

PATIENT
  Age: 62 Year
  Sex: Female

DRUGS (4)
  1. STRATTERA [Suspect]
     Dates: start: 20040101
  2. ESCITALOPRAM OXALATE [Concomitant]
  3. CLONAZEPAM [Concomitant]
  4. TAMOXIFEN CITRATE [Concomitant]

REACTIONS (4)
  - ANXIETY [None]
  - BLOOD PRESSURE INCREASED [None]
  - EMOTIONAL DISTRESS [None]
  - FALL [None]
